FAERS Safety Report 16398616 (Version 1)
Quarter: 2019Q3

REPORT INFORMATION
  Report Type: Spontaneous
  Country: US (occurrence: US)
  Receive Date: 20190605
  Receipt Date: 20190605
  Transmission Date: 20191004
  Serious: Yes (Other)
  Sender: FDA-Public Use
  Company Number: None

PATIENT
  Age: 38 Year
  Sex: Female
  Weight: 72 kg

DRUGS (2)
  1. MENOTROPINS [Suspect]
     Active Substance: MENOTROPINS
     Indication: OOCYTE HARVEST
     Dosage: ?          QUANTITY:2 VIALS OF POWDER;OTHER FREQUENCY:EACH EVENING;?
     Route: 058
     Dates: start: 20190516, end: 20190524
  2. FOLLITROPIN BETA [Suspect]
     Active Substance: FOLLITROPIN
     Indication: OOCYTE HARVEST
     Dosage: ?          QUANTITY:225 INJECTION(S);?
     Route: 058
     Dates: start: 20190516, end: 20190524

REACTIONS (1)
  - Arthralgia [None]

NARRATIVE: CASE EVENT DATE: 20190517
